FAERS Safety Report 14860331 (Version 2)
Quarter: 2018Q2

REPORT INFORMATION
  Report Type: Spontaneous
  Country: BR (occurrence: BR)
  Receive Date: 20180508
  Receipt Date: 20180515
  Transmission Date: 20180711
  Serious: Yes (Hospitalization)
  Sender: FDA-Public Use
  Company Number: BR-PFIZER INC-2017176158

PATIENT
  Age: 83 Year
  Sex: Female

DRUGS (7)
  1. NORVASC [Suspect]
     Active Substance: AMLODIPINE BESYLATE
     Indication: HYPERTENSION
     Dosage: 5 MG, 1X/DAY (1 TABLET AT BREAKFAST)
     Dates: start: 2013, end: 201709
  2. CALTRATE 600+D [Concomitant]
     Dosage: UNK
  3. CENTRUM SILVER /02363801/ [Concomitant]
     Active Substance: MINERALS\VITAMINS
     Dosage: UNK
  4. OLMETEC HCT [Suspect]
     Active Substance: HYDROCHLOROTHIAZIDE\OLMESARTAN MEDOXOMIL
     Indication: CARDIAC DISORDER
     Dosage: 1 TABLET PER DAY
  5. NORVASC [Suspect]
     Active Substance: AMLODIPINE BESYLATE
     Indication: CARDIAC DISORDER
     Dosage: 2.5 MG, 1X/DAY (0.5/HALF TABLET AT BREAKFAST)
  6. CLINFAR [Concomitant]
     Active Substance: SIMVASTATIN
     Dosage: UNK
  7. OLMETEC HCT [Suspect]
     Active Substance: HYDROCHLOROTHIAZIDE\OLMESARTAN MEDOXOMIL
     Indication: HYPERTENSION
     Dosage: 1 TABLET PER DAY, AT BREAKFAST
     Dates: start: 2013

REACTIONS (5)
  - Gastrointestinal motility disorder [Recovered/Resolved]
  - Headache [Not Recovered/Not Resolved]
  - Blood pressure decreased [Recovered/Resolved]
  - Urinary tract infection [Not Recovered/Not Resolved]
  - Sinusitis [Not Recovered/Not Resolved]

NARRATIVE: CASE EVENT DATE: 2017
